FAERS Safety Report 8170871-4 (Version None)
Quarter: 2012Q1

REPORT INFORMATION
  Report Type: 
  Country: None (occurrence: None)
  Receive Date: 20120228
  Receipt Date: 20120217
  Transmission Date: 20120608
  Serious: Yes (Other)
  Sender: FDA-Public Use
  Company Number: DK-VERTEX PHARMACEUTICALS INC.-000000000000000240

PATIENT
  Sex: Male
  Weight: 76 kg

DRUGS (8)
  1. REYATAZ [Concomitant]
  2. INCIVO (TELAPREVIR) [Concomitant]
  3. INCIVO (TELAPREVIR) [Suspect]
     Indication: HEPATITIS C
     Dosage: DOSAGE FORM: TABLET
     Route: 065
     Dates: start: 20110830, end: 20111120
  4. PEGINTERFERON ALFA-2A [Concomitant]
     Indication: HEPATITIS C
     Route: 065
     Dates: start: 20110830
  5. EMTRICITABINE [Concomitant]
  6. TENOFOVIR [Concomitant]
  7. NORVIR [Concomitant]
  8. RIBAVIRIN [Concomitant]
     Indication: HEPATITIS C
     Route: 065
     Dates: start: 20110830

REACTIONS (1)
  - ACUTE GENERALISED EXANTHEMATOUS PUSTULOSIS [None]
